FAERS Safety Report 21955592 (Version 2)
Quarter: 2023Q2

REPORT INFORMATION
  Report Type: Spontaneous
  Country: TW (occurrence: TW)
  Receive Date: 20230206
  Receipt Date: 20230420
  Transmission Date: 20230721
  Serious: Yes (Death, Hospitalization, Other)
  Sender: FDA-Public Use
  Company Number: TW-PFIZER INC-PV202300019293

PATIENT
  Sex: Female

DRUGS (1)
  1. ENBREL [Suspect]
     Active Substance: ETANERCEPT
     Indication: Psoriatic arthropathy
     Dosage: 25 MILLIGRAM, 2 TIMES/WK
     Route: 058
     Dates: start: 20151023

REACTIONS (3)
  - Cholelithiasis obstructive [Fatal]
  - Peritonitis [Fatal]
  - Abdominal pain [Unknown]
